FAERS Safety Report 8056418-1 (Version None)
Quarter: 2012Q1

REPORT INFORMATION
  Report Type: 
  Country: None (occurrence: None)
  Receive Date: 20120119
  Receipt Date: 20120112
  Transmission Date: 20120608
  Serious: Yes (Hospitalization)
  Sender: FDA-Public Use
  Company Number: JP-MERCK-1112USA03439

PATIENT
  Age: 68 Year
  Sex: Male

DRUGS (1)
  1. HYZAAR [Suspect]
     Indication: HYPERTENSION
     Route: 048
     Dates: end: 20120106

REACTIONS (4)
  - METABOLIC ACIDOSIS [None]
  - DEHYDRATION [None]
  - HYPONATRAEMIA [None]
  - GASTRIC ULCER [None]
